FAERS Safety Report 7319274-2 (Version None)
Quarter: 2011Q1

REPORT INFORMATION
  Report Type: 
  Country: None (occurrence: None)
  Receive Date: 20110228
  Receipt Date: 20100219
  Transmission Date: 20110831
  Serious: No
  Sender: FDA-Public Use
  Company Number: A0838084A

PATIENT
  Age: 37 Year
  Sex: Male

DRUGS (2)
  1. NONE [Concomitant]
  2. LAMICTAL [Suspect]
     Dosage: 25MG PER DAY
     Route: 048

REACTIONS (4)
  - RASH [None]
  - HYPERSENSITIVITY [None]
  - PRURITUS [None]
  - ERYTHEMA [None]
